FAERS Safety Report 16206855 (Version 1)
Quarter: 2019Q2

REPORT INFORMATION
  Report Type: Spontaneous
  Country: US (occurrence: US)
  Receive Date: 20190417
  Receipt Date: 20190417
  Transmission Date: 20190711
  Serious: No
  Sender: FDA-Public Use
  Company Number: US-MYLANLABS-2019M1033955

PATIENT
  Sex: Male
  Weight: 104.32 kg

DRUGS (2)
  1. VALSARTAN. [Suspect]
     Active Substance: VALSARTAN
     Indication: HYPERTENSION
     Dosage: UNK
  2. VALSARTAN. [Suspect]
     Active Substance: VALSARTAN
     Dosage: UNK

REACTIONS (4)
  - Joint swelling [Not Recovered/Not Resolved]
  - Depression [Unknown]
  - Pollakiuria [Unknown]
  - Peripheral swelling [Not Recovered/Not Resolved]
